FAERS Safety Report 4281682-4 (Version None)
Quarter: 2004Q1

REPORT INFORMATION
  Report Type: 
  Country: None (occurrence: None)
  Receive Date: 20040128
  Receipt Date: 20040113
  Transmission Date: 20041129
  Serious: Yes (Disabling)
  Sender: FDA-Public Use
  Company Number: UK063496

PATIENT
  Age: 59 Year
  Sex: Male
  Weight: 66 kg

DRUGS (2)
  1. ARANESP [Suspect]
     Indication: RENAL FAILURE CHRONIC
     Dosage: 100 MCG, EVERY 2 WEEKS, IV
     Route: 042
     Dates: start: 20030825, end: 20040105
  2. INSULIN [Concomitant]

REACTIONS (1)
  - ANAEMIA [None]
